FAERS Safety Report 8575230-8 (Version None)
Quarter: 2012Q3

REPORT INFORMATION
  Report Type: 
  Country: None (occurrence: None)
  Receive Date: 20120807
  Receipt Date: 20120730
  Transmission Date: 20120928
  Serious: Yes (Other)
  Sender: FDA-Public Use
  Company Number: CA-JNJFOC-20120714938

PATIENT
  Sex: Female
  Weight: 49 kg

DRUGS (1)
  1. REMICADE [Suspect]
     Indication: PSORIATIC ARTHROPATHY
     Route: 042
     Dates: start: 20090601, end: 20120101

REACTIONS (3)
  - MYELODYSPLASTIC SYNDROME [None]
  - DRUG INEFFECTIVE [None]
  - VARICOSE ULCERATION [None]
